FAERS Safety Report 24726942 (Version 1)
Quarter: 2024Q4

REPORT INFORMATION
  Report Type: Spontaneous
  Country: US (occurrence: None)
  Receive Date: 20241211
  Receipt Date: 20241211
  Transmission Date: 20250115
  Serious: Yes (Hospitalization, Disabling)
  Sender: Public
  Company Number: None

PATIENT
  Age: 45 Year
  Sex: Female
  Weight: 112.5 kg

DRUGS (4)
  1. LEVETIRACETAM [Suspect]
     Active Substance: LEVETIRACETAM
     Indication: Seizure
     Dosage: FREQUENCY : EVERY 12 HOURS;?
     Route: 048
     Dates: start: 20231207, end: 20240116
  2. ATIVAN [Suspect]
     Active Substance: LORAZEPAM
  3. LORAZEPAM [Concomitant]
     Active Substance: LORAZEPAM
  4. NORETHINDRONE [Concomitant]
     Active Substance: NORETHINDRONE

REACTIONS (4)
  - Psychotic disorder [None]
  - Hallucination, auditory [None]
  - Delusion [None]
  - Hallucination, auditory [None]

NARRATIVE: CASE EVENT DATE: 20240114
